FAERS Safety Report 16164851 (Version 1)
Quarter: 2019Q2

REPORT INFORMATION
  Report Type: Spontaneous
  Country: CA (occurrence: CA)
  Receive Date: 20190405
  Receipt Date: 20190405
  Transmission Date: 20190711
  Serious: Yes (Other)
  Sender: FDA-Public Use
  Company Number: CA-SHIRE-CA201911035

PATIENT

DRUGS (1)
  1. IDURSULFASE [Suspect]
     Active Substance: IDURSULFASE
     Indication: PRODUCT USED FOR UNKNOWN INDICATION
     Dosage: UNK, 1X/WEEK
     Route: 041

REACTIONS (3)
  - Influenza [Not Recovered/Not Resolved]
  - Cough [Not Recovered/Not Resolved]
  - Inappropriate schedule of product administration [Not Recovered/Not Resolved]
